FAERS Safety Report 9052863 (Version 1)
Quarter: 2013Q1

REPORT INFORMATION
  Report Type: Spontaneous
  Country: US (occurrence: US)
  Receive Date: 20130207
  Receipt Date: 20130207
  Transmission Date: 20140127
  Serious: Yes (Death)
  Sender: FDA-Public Use
  Company Number: US-TEVA-384727USA

PATIENT
  Sex: Female

DRUGS (1)
  1. PROAIR HFA [Suspect]

REACTIONS (2)
  - Gastrointestinal haemorrhage [Fatal]
  - Neoplasm malignant [Fatal]
